FAERS Safety Report 24703665 (Version 1)
Quarter: 2024Q4

REPORT INFORMATION
  Report Type: Spontaneous
  Country: DK (occurrence: DK)
  Receive Date: 20241206
  Receipt Date: 20241206
  Transmission Date: 20250115
  Serious: Yes (Hospitalization, Other)
  Sender: ALKEM
  Company Number: DK-ALKEM LABORATORIES LIMITED-DK-ALKEM-2024-12816

PATIENT
  Age: 59 Year
  Sex: Female

DRUGS (6)
  1. MYCOPHENOLATE MOFETIL [Suspect]
     Active Substance: MYCOPHENOLATE MOFETIL
     Indication: Immunosuppressant drug therapy
     Dosage: 1000 MILLIGRAM, BID
     Route: 065
  2. TACROLIMUS [Suspect]
     Active Substance: TACROLIMUS
     Indication: Immunosuppressant drug therapy
     Dosage: UNK
     Route: 065
  3. METHYLPREDNISOLONE [Suspect]
     Active Substance: METHYLPREDNISOLONE
     Indication: Immunosuppressant drug therapy
     Dosage: 1000 MILLIGRAM, ONCE (INTRAOPERATIVELY)
     Route: 065
  4. METHYLPREDNISOLONE [Suspect]
     Active Substance: METHYLPREDNISOLONE
     Dosage: UNK (TREATMENT DOSE)
     Route: 065
  5. BASILIXIMAB [Suspect]
     Active Substance: BASILIXIMAB
     Indication: Drug therapy
     Dosage: 20 MILLIGRAM (ON DAY 0)
     Route: 065
  6. BASILIXIMAB [Suspect]
     Active Substance: BASILIXIMAB
     Dosage: 20 MILLIGRAM (ON DAY 4)
     Route: 065

REACTIONS (1)
  - Pneumocystis jirovecii pneumonia [Unknown]
